FAERS Safety Report 10154125 (Version 1)
Quarter: 2014Q2

REPORT INFORMATION
  Report Type: Spontaneous
  Country: US (occurrence: None)
  Receive Date: 20140505
  Receipt Date: 20140505
  Transmission Date: 20141212
  Serious: Yes (Hospitalization)
  Sender: FDA-Public Use
  Company Number: None

PATIENT
  Age: 82 Year
  Sex: Male

DRUGS (12)
  1. WARFARIN [Suspect]
     Indication: ANTICOAGULANT THERAPY
     Dosage: VARIES DAILY PO
     Route: 048
     Dates: start: 20130403, end: 20130406
  2. METRONIDAZOLE [Concomitant]
  3. TIMOLOL [Concomitant]
  4. ACETAMIOPHEN [Concomitant]
  5. AMIODARONE [Concomitant]
  6. ASPIRIN [Concomitant]
  7. HYDROMORPHONE [Concomitant]
  8. INSULIN [Concomitant]
  9. LACTOBACILLUS GRANULES [Concomitant]
  10. LANSOPRAZOLE [Concomitant]
  11. LEVOFLOXACIN [Concomitant]
  12. METOPROOLOL [Concomitant]

REACTIONS (3)
  - International normalised ratio increased [None]
  - Haemoglobin decreased [None]
  - Rectal ulcer haemorrhage [None]
